FAERS Safety Report 25731891 (Version 3)
Quarter: 2025Q4

REPORT INFORMATION
  Report Type: Spontaneous
  Country: EU (occurrence: EU)
  Receive Date: 20250827
  Receipt Date: 20251212
  Transmission Date: 20260118
  Serious: Yes (Death)
  Sender: MERCK SHARP & DOHME LLC
  Company Number: None

PATIENT
  Age: 71 Year
  Sex: Male
  Weight: 65 kg

DRUGS (1)
  1. PEMBROLIZUMAB [Suspect]
     Active Substance: PEMBROLIZUMAB
     Indication: Squamous cell carcinoma of head and neck
     Dosage: 200 MG INTRAVENOUSLY EVERY 21 DAYS
     Route: 051
     Dates: start: 20250714, end: 20250804

REACTIONS (1)
  - Idiopathic interstitial pneumonia [Fatal]

NARRATIVE: CASE EVENT DATE: 20250808
